FAERS Safety Report 18094684 (Version 1)
Quarter: 2020Q3

REPORT INFORMATION
  Report Type: Spontaneous
  Country: LB (occurrence: LB)
  Receive Date: 20200730
  Receipt Date: 20200730
  Transmission Date: 20201103
  Serious: Yes (Life-Threatening, Hospitalization, Other)
  Sender: FDA-Public Use
  Company Number: LB-MACLEODS PHARMACEUTICALS US LTD-MAC2020027486

PATIENT

DRUGS (6)
  1. PREGABALIN. [Concomitant]
     Active Substance: PREGABALIN
     Indication: BACK PAIN
     Dosage: UNK, EVERY
     Route: 065
  2. TRAMADOL. [Suspect]
     Active Substance: TRAMADOL
     Indication: BACK PAIN
     Dosage: UNK, EVERY
     Route: 065
  3. PREGABALIN. [Concomitant]
     Active Substance: PREGABALIN
     Indication: MUSCLE SPASMS
  4. BACLOFEN. [Suspect]
     Active Substance: BACLOFEN
     Indication: BACK PAIN
     Dosage: UNK, EVERY
     Route: 065
  5. BACLOFEN. [Suspect]
     Active Substance: BACLOFEN
     Indication: MUSCLE SPASMS
  6. TRAMADOL. [Suspect]
     Active Substance: TRAMADOL
     Indication: MUSCLE SPASMS

REACTIONS (9)
  - Overdose [Recovered/Resolved]
  - Encephalopathy [Recovered/Resolved]
  - Somnolence [Recovered/Resolved]
  - Coma [Recovered/Resolved]
  - Drug level increased [Recovered/Resolved]
  - Myoclonus [Recovered/Resolved]
  - Toxicity to various agents [Recovered/Resolved]
  - Altered state of consciousness [Recovered/Resolved]
  - Generalised tonic-clonic seizure [Recovered/Resolved]
